FAERS Safety Report 4865150-4 (Version None)
Quarter: 2005Q4

REPORT INFORMATION
  Report Type: 
  Country: None (occurrence: None)
  Receive Date: 20051216
  Receipt Date: 20051215
  Transmission Date: 20060501
  Serious: Yes (Life-Threatening)
  Sender: FDA-Public Use
  Company Number: 2005S1000870

PATIENT
  Age: 8 Day
  Sex: Male

DRUGS (6)
  1. INOMAX [Suspect]
     Indication: LUNG DISORDER
     Dosage: 5 PPM; CONT INH
     Route: 055
     Dates: start: 20051202, end: 20051209
  2. INOMAX [Suspect]
     Indication: PROPHYLAXIS
     Dosage: 5 PPM; CONT INH
     Route: 055
     Dates: start: 20051202, end: 20051209
  3. AMPICILLIN SODIUM [Concomitant]
  4. CEFOTAXIME [Concomitant]
  5. AMINOPHYLLINE [Concomitant]
  6. INDOMETHACIN [Concomitant]

REACTIONS (1)
  - INTRAVENTRICULAR HAEMORRHAGE NEONATAL [None]
